FAERS Safety Report 25521654 (Version 1)
Quarter: 2025Q3

REPORT INFORMATION
  Report Type: Spontaneous
  Country: US (occurrence: US)
  Receive Date: 20250706
  Receipt Date: 20250706
  Transmission Date: 20251021
  Serious: No
  Sender: SANOFI AVENTIS
  Company Number: US-SA-2025SA188724

PATIENT
  Sex: Female

DRUGS (6)
  1. DUPIXENT [Suspect]
     Active Substance: DUPILUMAB
     Indication: Embolism venous
     Dosage: 300 MG, QOW
     Route: 058
  2. ASPIRIN [Interacting]
     Active Substance: ASPIRIN
  3. ELIQUIS [Concomitant]
     Active Substance: APIXABAN
  4. FLUTICASONE [Concomitant]
     Active Substance: FLUTICASONE
  5. HYDROCHLOROTHIAZIDE [Concomitant]
     Active Substance: HYDROCHLOROTHIAZIDE
  6. VITAMIN D NOS [Concomitant]
     Active Substance: CHOLECALCIFEROL\ERGOCALCIFEROL

REACTIONS (6)
  - Back pain [Unknown]
  - Insomnia [Unknown]
  - Dry eye [Unknown]
  - Arthralgia [Unknown]
  - Product storage error [Unknown]
  - Product use in unapproved indication [Unknown]
